FAERS Safety Report 5798699-0 (Version None)
Quarter: 2008Q3

REPORT INFORMATION
  Report Type: 
  Country: None (occurrence: None)
  Receive Date: 20080702
  Receipt Date: 20080624
  Transmission Date: 20090109
  Serious: Yes (Other)
  Sender: FDA-Public Use
  Company Number: US-ASTRAZENECA-2008UW12689

PATIENT
  Age: 48 Year
  Sex: Male
  Weight: 104.3 kg

DRUGS (3)
  1. SEROQUEL [Suspect]
     Indication: BIPOLAR I DISORDER
     Route: 048
  2. SEROQUEL [Suspect]
     Route: 048
  3. DEPAKOTE [Concomitant]

REACTIONS (4)
  - DISTURBANCE IN ATTENTION [None]
  - IRRITABILITY [None]
  - LOSS OF CONSCIOUSNESS [None]
  - NAUSEA [None]
